FAERS Safety Report 4353700-6 (Version None)
Quarter: 2004Q2

REPORT INFORMATION
  Report Type: 
  Country: None (occurrence: None)
  Receive Date: 20040430
  Receipt Date: 20040419
  Transmission Date: 20050107
  Serious: Yes (Other)
  Sender: FDA-Public Use
  Company Number: 2004-0006925

PATIENT
  Age: 69 Year
  Sex: Male

DRUGS (6)
  1. VIREAD [Suspect]
     Indication: HIV INFECTION
     Dosage: 300 MG, 1 IN 1 D, ORAL
     Route: 048
     Dates: start: 20010703, end: 20040329
  2. DIDANOSINE EC (DIDANOSINE) [Concomitant]
  3. KALETRA [Concomitant]
  4. AGENERASE [Concomitant]
  5. ACYCLOVIR [Concomitant]
  6. TYLENOL + CODEINE (PANADEINE CO) [Concomitant]

REACTIONS (4)
  - ANOREXIA [None]
  - DYSGEUSIA [None]
  - HYPOPHOSPHATAEMIA [None]
  - WEIGHT DECREASED [None]
